FAERS Safety Report 7352136-3 (Version None)
Quarter: 2011Q1

REPORT INFORMATION
  Report Type: 
  Country: None (occurrence: None)
  Receive Date: 20110309
  Receipt Date: 20110309
  Transmission Date: 20110831
  Serious: Yes (Life-Threatening, Hospitalization, Disabling, Other)
  Sender: FDA-Public Use
  Company Number: None

PATIENT
  Age: 26 Year
  Sex: Female
  Weight: 54.8852 kg

DRUGS (3)
  1. ATIVAN [Concomitant]
  2. ANTI DEPRESSANTS [Concomitant]
  3. IMPLANON [Suspect]
     Indication: CONTRACEPTION
     Dosage: 68MG
     Dates: start: 20101102

REACTIONS (9)
  - HEART RATE DECREASED [None]
  - FEAR [None]
  - EXTRASYSTOLES [None]
  - PALPITATIONS [None]
  - DEPRESSION [None]
  - FEELING ABNORMAL [None]
  - FEELING HOT [None]
  - APPARENT DEATH [None]
  - PANIC ATTACK [None]
